FAERS Safety Report 4692630-7 (Version None)
Quarter: 2005Q2

REPORT INFORMATION
  Report Type: 
  Country: None (occurrence: None)
  Receive Date: 20050617
  Receipt Date: 20050606
  Transmission Date: 20051028
  Serious: Yes (Death, Other)
  Sender: FDA-Public Use
  Company Number: US-MERCK-0506USA01096

PATIENT
  Age: 65 Year
  Sex: Female
  Weight: 57 kg

DRUGS (14)
  1. VIOXX [Suspect]
     Indication: ARTHRITIS
     Route: 048
     Dates: start: 20020225, end: 20040713
  2. PEPCID [Concomitant]
     Indication: GASTROOESOPHAGEAL REFLUX DISEASE
     Route: 065
  3. METOCLOPRAMIDE HYDROCHLORIDE [Concomitant]
     Indication: NAUSEA
     Route: 065
  4. DICLOFENAC [Concomitant]
     Indication: ARTHRITIS
     Route: 065
  5. DOXYCYCLINE [Concomitant]
     Indication: INFECTION
     Route: 065
  6. PAXIL [Concomitant]
     Route: 065
  7. LIPITOR [Concomitant]
     Route: 065
  8. ALLEGRA [Concomitant]
     Route: 065
  9. PREMARIN [Concomitant]
     Route: 065
  10. DIOVAN [Concomitant]
     Indication: HYPERTENSION
     Route: 065
  11. ARICEPT [Concomitant]
     Indication: DEMENTIA ALZHEIMER'S TYPE
     Route: 065
  12. DIFLUCAN [Concomitant]
     Route: 065
  13. CHLORAZEPATE [Concomitant]
     Indication: ANXIETY
     Route: 065
  14. TYLENOL W/ CODEINE NO. 3 [Concomitant]
     Route: 065

REACTIONS (4)
  - AORTIC ANEURYSM [None]
  - CEREBROVASCULAR ACCIDENT [None]
  - FALL [None]
  - MYOCARDIAL INFARCTION [None]
